FAERS Safety Report 8057339-0 (Version None)
Quarter: 2012Q1

REPORT INFORMATION
  Report Type: 
  Country: None (occurrence: None)
  Receive Date: 20120119
  Receipt Date: 20111117
  Transmission Date: 20120608
  Serious: Yes (Death, Hospitalization, Other)
  Sender: FDA-Public Use
  Company Number: BR-ABBOTT-11P-020-0857041-00

PATIENT
  Sex: Male
  Weight: 70 kg

DRUGS (3)
  1. HUMIRA [Suspect]
     Indication: ANKYLOSING SPONDYLITIS
     Dates: start: 20100101
  2. HUMIRA [Suspect]
     Indication: RHEUMATOID ARTHRITIS
  3. DICLOFENAC SODIUM [Concomitant]
     Indication: ANKYLOSING SPONDYLITIS

REACTIONS (8)
  - INFECTION [None]
  - IMMUNODEFICIENCY [None]
  - BACK PAIN [None]
  - SEPSIS [None]
  - LUNG INFECTION [None]
  - CHOLELITHIASIS [None]
  - MULTI-ORGAN FAILURE [None]
  - OSTEOMYELITIS [None]
